FAERS Safety Report 4562740-3 (Version None)
Quarter: 2005Q1

REPORT INFORMATION
  Report Type: 
  Country: None (occurrence: None)
  Receive Date: 20050127
  Receipt Date: 20050119
  Transmission Date: 20050727
  Serious: Yes (Other)
  Sender: FDA-Public Use
  Company Number: PHEH2005US01119

PATIENT
  Sex: Female

DRUGS (2)
  1. ZOMETA [Suspect]
  2. HERCEPTIN [Suspect]

REACTIONS (3)
  - DRUG INTERACTION [None]
  - HEADACHE [None]
  - HYPERTENSION [None]
